FAERS Safety Report 4362304-0 (Version None)
Quarter: 2004Q2

REPORT INFORMATION
  Report Type: 
  Country: None (occurrence: None)
  Receive Date: 20040517
  Receipt Date: 20040504
  Transmission Date: 20050107
  Serious: No
  Sender: FDA-Public Use
  Company Number: MK200405-0158-1

PATIENT
  Age: 61 Year
  Sex: Male

DRUGS (2)
  1. THALLOUS CHLORIDE  TL 201 5.8 MCI [Suspect]
     Indication: SCAN MYOCARDIAL PERFUSION
     Dosage: 133 MBQ, SINGLE USE
     Dates: start: 20040401, end: 20040401
  2. THALLOUS CHLORIDE  TL 201 5.8 MCI [Suspect]
     Indication: SCINTIGRAPHY
     Dosage: 133 MBQ, SINGLE USE
     Dates: start: 20040401, end: 20040401

REACTIONS (7)
  - DYSPNOEA [None]
  - ELECTROCARDIOGRAM CHANGE [None]
  - EXANTHEM [None]
  - LOCAL SWELLING [None]
  - PRURITUS [None]
  - SWELLING FACE [None]
  - URTICARIA [None]
